FAERS Safety Report 8819246 (Version 1)
Quarter: 2012Q4

REPORT INFORMATION
  Report Type: 
  Country: US (occurrence: US)
  Receive Date: 20121001
  Receipt Date: 20121001
  Transmission Date: 20130627
  Serious: No
  Sender: FDA-Public Use
  Company Number: US-JNJFOC-20120800389

PATIENT
  Age: 53 Year
  Sex: Female
  Weight: 58.97 kg

DRUGS (9)
  1. DURAGESIC [Suspect]
     Indication: MIGRAINE
     Route: 062
     Dates: start: 201201
  2. TOPOMAX [Concomitant]
     Indication: MIGRAINE PROPHYLAXIS
     Route: 048
     Dates: start: 2000
  3. MELOXICAM [Concomitant]
     Indication: MIGRAINE
     Route: 065
     Dates: start: 2012
  4. MIGRANAL [Concomitant]
     Indication: MIGRAINE
     Route: 065
  5. TRAZODONE [Concomitant]
     Indication: SLEEP DISORDER
     Route: 065
     Dates: start: 2011
  6. TIZANIDINE [Concomitant]
     Indication: SLEEP DISORDER
     Route: 065
  7. MELATONIN [Concomitant]
     Indication: SLEEP DISORDER
     Route: 065
  8. MAGNESIUM [Concomitant]
     Indication: MIGRAINE
     Route: 065
  9. VITAMIN B12 [Concomitant]
     Indication: HYPOVITAMINOSIS
     Route: 065

REACTIONS (3)
  - Poor quality drug administered [Unknown]
  - Product quality issue [Unknown]
  - Off label use [Unknown]
